FAERS Safety Report 23468997 (Version 1)
Quarter: 2024Q1

REPORT INFORMATION
  Report Type: Other
  Country: US (occurrence: None)
  Receive Date: 20240202
  Receipt Date: 20240202
  Transmission Date: 20240410
  Serious: No
  Sender: FDA-Public Use
  Company Number: US-ROCHE-3503153

PATIENT
  Age: 47 Year
  Sex: Female

DRUGS (1)
  1. OCREVUS [Suspect]
     Active Substance: OCRELIZUMAB
     Indication: Multiple sclerosis
     Dosage: DATE OF PREVIOUS INFUSION: 10/JUN/2022, DATE OF NEXT INFUSION: 16/DEC/2022.
     Route: 065

REACTIONS (1)
  - COVID-19 [Unknown]
